FAERS Safety Report 5985086-5 (Version None)
Quarter: 2008Q4

REPORT INFORMATION
  Report Type: 
  Country: None (occurrence: None)
  Receive Date: 20081208
  Receipt Date: 20080521
  Transmission Date: 20090506
  Serious: Yes (Other)
  Sender: FDA-Public Use
  Company Number: US-AMGEN-QUU281308

PATIENT
  Sex: Female

DRUGS (1)
  1. ENBREL [Suspect]
     Indication: ANKYLOSING SPONDYLITIS
     Route: 058
     Dates: start: 20070120

REACTIONS (7)
  - AGITATION [None]
  - DEPRESSED MOOD [None]
  - HEADACHE [None]
  - HEARING IMPAIRED [None]
  - HYPOACUSIS [None]
  - INJECTION SITE PAIN [None]
  - INJECTION SITE SWELLING [None]
